FAERS Safety Report 6692691-X (Version None)
Quarter: 2010Q2

REPORT INFORMATION
  Report Type: 
  Country: None (occurrence: None)
  Receive Date: 20100422
  Receipt Date: 20100409
  Transmission Date: 20101027
  Serious: Yes (Other)
  Sender: FDA-Public Use
  Company Number: NL-PFIZER INC-2010029147

PATIENT
  Sex: Male

DRUGS (2)
  1. NEURONTIN [Suspect]
     Dosage: UNK
  2. NIFEDIPINE [Suspect]
     Dosage: UNK

REACTIONS (2)
  - BLOOD SODIUM DECREASED [None]
  - HYPERTENSION [None]
